FAERS Safety Report 15477044 (Version 2)
Quarter: 2018Q4

REPORT INFORMATION
  Report Type: Report from Study
  Country: US (occurrence: US)
  Receive Date: 20181009
  Receipt Date: 20181026
  Transmission Date: 20190205
  Serious: Yes (Death, Hospitalization)
  Sender: FDA-Public Use
  Company Number: US-TEVA-2018-US-961726

PATIENT

DRUGS (3)
  1. QUETIAPINE FUMARATE. [Suspect]
     Active Substance: QUETIAPINE FUMARATE
     Indication: AGITATION
     Route: 065
  2. TRAZODONE [Suspect]
     Active Substance: TRAZODONE HYDROCHLORIDE
     Route: 065
  3. RITONAVIR. [Suspect]
     Active Substance: RITONAVIR
     Route: 065

REACTIONS (2)
  - Cardiac arrest [Fatal]
  - Ventricular fibrillation [Fatal]
